FAERS Safety Report 9238964 (Version 5)
Quarter: 2013Q4

REPORT INFORMATION
  Report Type: Report from Study
  Country: BR (occurrence: BR)
  Receive Date: 20130418
  Receipt Date: 20131028
  Transmission Date: 20140711
  Serious: Yes (Hospitalization)
  Sender: FDA-Public Use
  Company Number: BR-ROCHE-1088542

PATIENT
  Sex: Female
  Weight: 57 kg

DRUGS (10)
  1. MABTHERA [Suspect]
     Indication: RHEUMATOID ARTHRITIS
     Route: 042
     Dates: start: 201106, end: 201107
  2. METHOTREXATE [Suspect]
     Indication: RHEUMATOID ARTHRITIS
     Route: 065
  3. NIMESULIDE [Concomitant]
     Route: 065
  4. PREDNISONE [Concomitant]
     Route: 065
  5. PARACETAMOL [Concomitant]
  6. TRAMADOL [Concomitant]
  7. GABAPENTIN [Concomitant]
  8. SIMVASTATIN [Concomitant]
     Route: 065
  9. OMEPRAZOLE [Concomitant]
  10. CORTISONE [Concomitant]

REACTIONS (8)
  - Arthropathy [Recovered/Resolved]
  - Pain in extremity [Not Recovered/Not Resolved]
  - Arthralgia [Not Recovered/Not Resolved]
  - Spinal pain [Not Recovered/Not Resolved]
  - Pain in extremity [Not Recovered/Not Resolved]
  - Dysphonia [Recovered/Resolved]
  - Rheumatoid arthritis [Not Recovered/Not Resolved]
  - Anaemia [Recovering/Resolving]
